FAERS Safety Report 24764287 (Version 2)
Quarter: 2025Q3

REPORT INFORMATION
  Report Type: Report from Study
  Country: US (occurrence: US)
  Receive Date: 20241223
  Receipt Date: 20250724
  Transmission Date: 20251020
  Serious: Yes (Other)
  Sender: TAKEDA
  Company Number: US-TAKEDA-2022TUS083464

PATIENT
  Sex: Female
  Weight: 88 kg

DRUGS (22)
  1. HUMAN IMMUNOGLOBULIN G [Suspect]
     Active Substance: HUMAN IMMUNOGLOBULIN G
     Indication: Immunodeficiency common variable
     Dosage: 12 GRAM, Q2WEEKS
  2. ACETAMINOPHEN [Concomitant]
     Active Substance: ACETAMINOPHEN
  3. MIRTAZAPINE [Concomitant]
     Active Substance: MIRTAZAPINE
  4. DORZOLAMIDE HYDROCHLORIDE [Concomitant]
     Active Substance: DORZOLAMIDE HYDROCHLORIDE
  5. DILTIAZEM [Concomitant]
     Active Substance: DILTIAZEM
  6. JARDIANCE [Concomitant]
     Active Substance: EMPAGLIFLOZIN
  7. TOUJEO MAX [Concomitant]
     Active Substance: INSULIN GLARGINE
  8. TRAVATAN Z [Concomitant]
     Active Substance: TRAVOPROST
  9. ASTELIN [Concomitant]
     Active Substance: AZELASTINE HYDROCHLORIDE
  10. COREG [Concomitant]
     Active Substance: CARVEDILOL
  11. ALBUTEROL SULFATE [Concomitant]
     Active Substance: ALBUTEROL SULFATE
  12. VITAMIN D [Concomitant]
     Active Substance: VITAMIN D NOS
  13. PROTONIX [Concomitant]
     Active Substance: PANTOPRAZOLE SODIUM
  14. MONTELUKAST SODIUM [Concomitant]
     Active Substance: MONTELUKAST SODIUM
  15. TRAZODONE HCL [Concomitant]
     Active Substance: TRAZODONE HYDROCHLORIDE
  16. DIPHENHYDRAMINE [Concomitant]
     Active Substance: DIPHENHYDRAMINE
  17. Lmx [Concomitant]
  18. LOSARTAN POTASSIUM [Concomitant]
     Active Substance: LOSARTAN POTASSIUM
  19. ASPIRIN [Concomitant]
     Active Substance: ASPIRIN
  20. TYLENOL [Concomitant]
     Active Substance: ACETAMINOPHEN
  21. EPINEPHRINE [Concomitant]
     Active Substance: EPINEPHRINE
  22. DIPHENHYDRAMINE HYDROCHLORIDE [Concomitant]
     Active Substance: DIPHENHYDRAMINE HYDROCHLORIDE

REACTIONS (10)
  - Cataract [Unknown]
  - Tooth infection [Unknown]
  - COVID-19 [Unknown]
  - Seasonal allergy [Unknown]
  - Multiple allergies [Unknown]
  - Paranasal sinus hypersecretion [Unknown]
  - Nasopharyngitis [Unknown]
  - Inappropriate schedule of product administration [Unknown]
  - Infusion site pruritus [Unknown]
  - Malaise [Unknown]
